FAERS Safety Report 8438385-1 (Version None)
Quarter: 2012Q2

REPORT INFORMATION
  Report Type: 
  Country: None (occurrence: None)
  Receive Date: 20120614
  Receipt Date: 20120612
  Transmission Date: 20120825
  Serious: Yes (Disabling)
  Sender: FDA-Public Use
  Company Number: US-MERCK-1204USA00414

PATIENT
  Age: 29 Month
  Sex: Female
  Weight: 14 kg

DRUGS (2)
  1. SINGULAIR [Suspect]
     Indication: ASTHMA
     Route: 048
  2. SINGULAIR [Suspect]
     Indication: HYPERSENSITIVITY
     Route: 048
     Dates: start: 20120204, end: 20120306

REACTIONS (3)
  - DYSPHONIA [None]
  - DYSPHEMIA [None]
  - AGGRESSION [None]
